FAERS Safety Report 16239864 (Version 2)
Quarter: 2019Q2

REPORT INFORMATION
  Report Type: Spontaneous
  Country: FR (occurrence: FR)
  Receive Date: 20190425
  Receipt Date: 20190426
  Transmission Date: 20190711
  Serious: Yes (Other)
  Sender: FDA-Public Use
  Company Number: FR-ASTRAZENECA-2019SE58898

PATIENT
  Age: 66 Year
  Sex: Male
  Weight: 98 kg

DRUGS (13)
  1. ASPEGIC (ACETYLSALICYLATE LYSINE) [Suspect]
     Active Substance: ASPIRIN DL-LYSINE
     Indication: ACUTE CORONARY SYNDROME
     Route: 042
     Dates: start: 20190311, end: 20190311
  2. VISIPAQUE [Suspect]
     Active Substance: IODIXANOL
     Indication: ANGIOCARDIOGRAM
     Dosage: 175.0ML ONCE/SINGLE ADMINISTRATION
     Route: 013
     Dates: start: 20190311, end: 20190311
  3. BRILIQUE [Suspect]
     Active Substance: TICAGRELOR
     Indication: ACUTE CORONARY SYNDROME
     Route: 048
     Dates: start: 20190311
  4. ISOPTINE [Suspect]
     Active Substance: VERAPAMIL HYDROCHLORIDE
     Indication: ANGIOCARDIOGRAM
     Route: 042
     Dates: start: 20190311, end: 20190311
  5. XYLOCAINE [Suspect]
     Active Substance: LIDOCAINE HYDROCHLORIDE
     Indication: LOCAL ANAESTHESIA
     Route: 058
     Dates: start: 20190311, end: 20190311
  6. XYLOCAINE [Suspect]
     Active Substance: LIDOCAINE HYDROCHLORIDE
     Indication: ANGIOCARDIOGRAM
     Route: 058
     Dates: start: 20190311, end: 20190311
  7. BRINTELLIX [Concomitant]
     Active Substance: VORTIOXETINE HYDROBROMIDE
  8. KARDEGIC [Concomitant]
     Active Substance: ASPIRIN DL-LYSINE
  9. HEPARINE SODIQUE [Suspect]
     Active Substance: HEPARIN SODIUM
     Indication: ANGIOCARDIOGRAM
     Dosage: 7000.0IU ONCE/SINGLE ADMINISTRATION
     Route: 042
     Dates: start: 20190311, end: 20190311
  10. STAGID [Concomitant]
     Active Substance: METFORMIN PAMOATE
  11. ISOSORBIDE. [Suspect]
     Active Substance: ISOSORBIDE
     Indication: ANGIOCARDIOGRAM
     Route: 022
     Dates: start: 20190311, end: 20190311
  12. BISOPROLOL [Concomitant]
     Active Substance: BISOPROLOL
  13. SIMVASTATIN. [Concomitant]
     Active Substance: SIMVASTATIN

REACTIONS (2)
  - Pruritus [Recovered/Resolved]
  - Erythema [Recovered/Resolved]

NARRATIVE: CASE EVENT DATE: 20190312
